FAERS Safety Report 9856698 (Version 2)
Quarter: 2014Q2

REPORT INFORMATION
  Report Type: Spontaneous
  Country: US (occurrence: US)
  Receive Date: 20140130
  Receipt Date: 20140424
  Transmission Date: 20141212
  Serious: Yes (Other)
  Sender: FDA-Public Use
  Company Number: US-GLAXOSMITHKLINE-A1058765A

PATIENT
  Sex: Male

DRUGS (7)
  1. VOTRIENT [Suspect]
     Indication: ADENOCARCINOMA
     Route: 065
  2. CARBOPLATIN [Suspect]
     Indication: ADENOCARCINOMA
     Route: 065
  3. DOXORUBICIN [Suspect]
     Indication: ADENOCARCINOMA
     Route: 065
  4. TORISEL [Suspect]
     Indication: ADENOCARCINOMA
     Route: 065
  5. REMICADE [Suspect]
     Indication: ADENOCARCINOMA
     Route: 065
  6. UNSPECIFIED MEDICATION [Suspect]
     Indication: ADENOCARCINOMA
     Route: 065
  7. CRIZOTINIB [Suspect]
     Indication: ADENOCARCINOMA
     Route: 065

REACTIONS (2)
  - Adenocarcinoma [Unknown]
  - Surgery [Unknown]
